FAERS Safety Report 8308325-4 (Version None)
Quarter: 2012Q2

REPORT INFORMATION
  Report Type: 
  Country: None (occurrence: None)
  Receive Date: 20120424
  Receipt Date: 20120413
  Transmission Date: 20120825
  Serious: Yes (Hospitalization)
  Sender: FDA-Public Use
  Company Number: ES-ROCHE-1059430

PATIENT
  Age: 93 Year
  Sex: Female

DRUGS (4)
  1. OLANZAPINE [Interacting]
     Indication: DEMENTIA
     Route: 048
     Dates: start: 20090101, end: 20101019
  2. TRAZODONE HCL [Interacting]
     Indication: PRODUCT USED FOR UNKNOWN INDICATION
     Route: 048
     Dates: start: 20090101, end: 20101019
  3. OMEPRAZOLE [Concomitant]
     Route: 048
     Dates: start: 20090101
  4. CLONAZEPAM [Suspect]
     Indication: DEMENTIA
     Route: 048
     Dates: start: 20090101, end: 20101019

REACTIONS (2)
  - DYSKINESIA [None]
  - PARKINSONISM [None]
